FAERS Safety Report 12673953 (Version 1)
Quarter: 2016Q3

REPORT INFORMATION
  Report Type: Report from Study
  Country: JP (occurrence: JP)
  Receive Date: 20160822
  Receipt Date: 20160822
  Transmission Date: 20161109
  Serious: Yes (Hospitalization, Other)
  Sender: FDA-Public Use
  Company Number: JP-BIOGEN-A200700095

PATIENT
  Age: 6 Year
  Sex: Female
  Weight: 20 kg

DRUGS (9)
  1. DIAZEPAM. [Concomitant]
     Active Substance: DIAZEPAM
     Indication: PROPHYLAXIS
     Route: 048
     Dates: start: 20071026, end: 20071026
  2. AVONEX [Suspect]
     Active Substance: INTERFERON BETA-1A
     Indication: RELAPSING-REMITTING MULTIPLE SCLEROSIS
     Route: 030
     Dates: start: 20071006, end: 20071026
  3. AVONEX [Suspect]
     Active Substance: INTERFERON BETA-1A
     Indication: RELAPSING-REMITTING MULTIPLE SCLEROSIS
     Route: 030
     Dates: start: 20080121, end: 20080128
  4. MIDAZOLAM [Concomitant]
     Active Substance: MIDAZOLAM\MIDAZOLAM HYDROCHLORIDE
     Indication: GENERALISED TONIC-CLONIC SEIZURE
     Route: 042
     Dates: start: 20071019, end: 20071019
  5. ACETAMINOPHEN. [Concomitant]
     Active Substance: ACETAMINOPHEN
     Indication: PYREXIA
     Route: 048
     Dates: start: 20071026, end: 20071026
  6. FOSAMAC 5MG [Concomitant]
     Indication: PROPHYLAXIS
     Route: 048
     Dates: start: 20060911
  7. DIAZEPAM. [Concomitant]
     Active Substance: DIAZEPAM
     Indication: GENERALISED TONIC-CLONIC SEIZURE
     Route: 042
     Dates: start: 20071019, end: 20071019
  8. GASTER [Concomitant]
     Active Substance: FAMOTIDINE
     Indication: PROPHYLAXIS
     Route: 048
     Dates: start: 20060911
  9. MITOXANTRONE [Concomitant]
     Active Substance: MITOXANTRONE HYDROCHLORIDE
     Indication: RELAPSING-REMITTING MULTIPLE SCLEROSIS
     Route: 042
     Dates: start: 20061113, end: 20071112

REACTIONS (14)
  - Pyrexia [Recovered/Resolved]
  - Chills [Recovered/Resolved]
  - Vomiting [Recovered/Resolved]
  - Generalised tonic-clonic seizure [Recovered/Resolved]
  - Pyrexia [Recovered/Resolved]
  - Chills [Recovered/Resolved]
  - Influenza like illness [Recovered/Resolved]
  - Pyrexia [Recovered/Resolved]
  - Pyrexia [Recovered/Resolved]
  - Pyrexia [Recovered/Resolved]
  - Pyrexia [Recovered/Resolved]
  - Chills [Recovered/Resolved]
  - Vomiting [Recovered/Resolved]
  - Viral upper respiratory tract infection [Recovered/Resolved]

NARRATIVE: CASE EVENT DATE: 20071006
